FAERS Safety Report 4936275-X (Version None)
Quarter: 2006Q1

REPORT INFORMATION
  Report Type: 
  Country: None (occurrence: None)
  Receive Date: 20060127
  Receipt Date: 20051129
  Transmission Date: 20060701
  Serious: Yes (Other)
  Sender: FDA-Public Use
  Company Number: 2005163400

PATIENT
  Age: 61 Year
  Sex: Female
  Weight: 54.4316 kg

DRUGS (8)
  1. LYRICA [Suspect]
     Indication: PAIN IN EXTREMITY
     Dosage: 150 MG (75 MG, 2 IN 1 D), ORAL
     Route: 048
     Dates: start: 20051103, end: 20051103
  2. NOVOLOG [Concomitant]
  3. CALCIUM (CALCIUM) [Concomitant]
  4. LEVOXYL [Concomitant]
  5. DIOVAN [Concomitant]
  6. ZELNORM [Concomitant]
  7. CELEBREX [Concomitant]
  8. CARDIZEM [Concomitant]

REACTIONS (4)
  - DIZZINESS [None]
  - HYPERSOMNIA [None]
  - PAIN [None]
  - VOMITING [None]
